FAERS Safety Report 6435218-X (Version None)
Quarter: 2009Q4

REPORT INFORMATION
  Report Type: 
  Country: None (occurrence: None)
  Receive Date: 20091110
  Receipt Date: 20091028
  Transmission Date: 20100525
  Serious: Yes (Hospitalization, Other)
  Sender: FDA-Public Use
  Company Number: US-ELI_LILLY_AND_COMPANY-US200911000579

PATIENT
  Age: 35 Year
  Sex: Female

DRUGS (2)
  1. CYMBALTA [Suspect]
     Indication: BIPOLAR I DISORDER
     Dosage: 60 MG, UNK
  2. ABILIFY [Concomitant]
     Indication: BIPOLAR I DISORDER

REACTIONS (2)
  - PLATELET COUNT DECREASED [None]
  - PSYCHOTIC DISORDER [None]
